FAERS Safety Report 25585897 (Version 7)
Quarter: 2025Q3

REPORT INFORMATION
  Report Type: Report from Study
  Country: CA (occurrence: CA)
  Receive Date: 20250721
  Receipt Date: 20250917
  Transmission Date: 20251020
  Serious: Yes (Other)
  Sender: ABBVIE
  Company Number: CA-ABBVIE-6358889

PATIENT
  Age: 60 Year
  Sex: Female

DRUGS (7)
  1. VYALEV [Suspect]
     Active Substance: FOSCARBIDOPA\FOSLEVODOPA
     Indication: Product used for unknown indication
     Route: 058
     Dates: start: 20250402
  2. PRAMIPEXOLE [Concomitant]
     Active Substance: PRAMIPEXOLE
     Indication: Product used for unknown indication
  3. RASAGILINE [Concomitant]
     Active Substance: RASAGILINE
     Indication: Product used for unknown indication
  4. CARBIDOPA\LEVODOPA [Concomitant]
     Active Substance: CARBIDOPA\LEVODOPA
     Indication: Product used for unknown indication
  5. ENTACAPONE [Concomitant]
     Active Substance: ENTACAPONE
     Indication: Product used for unknown indication
  6. EXELON [Concomitant]
     Active Substance: RIVASTIGMINE TARTRATE
     Indication: Product used for unknown indication
  7. CARBIDOPA\LEVODOPA [Concomitant]
     Active Substance: CARBIDOPA\LEVODOPA
     Indication: Product used for unknown indication

REACTIONS (17)
  - Foot operation [Unknown]
  - Mobility decreased [Unknown]
  - Freezing phenomenon [Recovered/Resolved]
  - Catheter site mass [Unknown]
  - Pain [Unknown]
  - Catheter site induration [Recovering/Resolving]
  - Catheter site pain [Not Recovered/Not Resolved]
  - Catheter site warmth [Recovering/Resolving]
  - Catheter site related reaction [Recovering/Resolving]
  - Catheter site nodule [Unknown]
  - Device issue [Not Recovered/Not Resolved]
  - Contusion [Unknown]
  - Dyskinesia [Unknown]
  - Therapeutic response shortened [Unknown]
  - Catheter site infection [Recovering/Resolving]
  - Mental disorder [Unknown]
  - Fall [Recovered/Resolved]

NARRATIVE: CASE EVENT DATE: 20250101
